FAERS Safety Report 24743169 (Version 1)
Quarter: 2024Q4

REPORT INFORMATION
  Report Type: Spontaneous
  Country: US (occurrence: US)
  Receive Date: 20241217
  Receipt Date: 20241217
  Transmission Date: 20250114
  Serious: No
  Sender: RECKITT BENCKISER
  Company Number: US-PROD-AS2-212756134-RB-082396-2024

PATIENT
  Sex: Female

DRUGS (2)
  1. DELSYM COUGH [Suspect]
     Active Substance: DEXTROMETHORPHAN HYDROBROMIDE
     Indication: Cough
     Dosage: UNKNOWN
     Route: 048
  2. DELSYM COUGH [Suspect]
     Active Substance: DEXTROMETHORPHAN HYDROBROMIDE
     Indication: Headache

REACTIONS (2)
  - Drug ineffective for unapproved indication [Unknown]
  - Drug ineffective [Not Recovered/Not Resolved]
